FAERS Safety Report 11137381 (Version 1)
Quarter: 2015Q2

REPORT INFORMATION
  Report Type: Spontaneous
  Country: IT (occurrence: IT)
  Receive Date: 20150526
  Receipt Date: 20150526
  Transmission Date: 20150821
  Serious: Yes (Other)
  Sender: FDA-Public Use
  Company Number: IT-AUROBINDO-AUR-APL-2015-04501

PATIENT
  Age: 64 Year
  Sex: Male

DRUGS (1)
  1. SILDENAFIL 100MG AUROGRA [Suspect]
     Active Substance: SILDENAFIL
     Indication: ERECTILE DYSFUNCTION
     Dosage: 100 MG, UNK
     Route: 065

REACTIONS (4)
  - Sensory loss [Recovered/Resolved]
  - Ischaemic stroke [Recovered/Resolved]
  - White matter lesion [Unknown]
  - Hemiparesis [Recovered/Resolved]
